FAERS Safety Report 10203619 (Version 3)
Quarter: 2014Q2

REPORT INFORMATION
  Report Type: Spontaneous
  Country: IT (occurrence: IT)
  Receive Date: 20140529
  Receipt Date: 20140602
  Transmission Date: 20141212
  Serious: Yes (Hospitalization)
  Sender: FDA-Public Use
  Company Number: IT-RANBAXY-2014RR-81585

PATIENT
  Age: 46 Year
  Sex: Female

DRUGS (1)
  1. PANTOPRAZOLE [Suspect]
     Indication: ABDOMINAL PAIN UPPER
     Dosage: 1 DF TOTAL
     Route: 048
     Dates: start: 20140414, end: 20140414

REACTIONS (5)
  - Dysphagia [Recovering/Resolving]
  - Erythema [Recovering/Resolving]
  - Nausea [Recovering/Resolving]
  - Throat tightness [Recovering/Resolving]
  - Vomiting [Recovering/Resolving]
